FAERS Safety Report 16193139 (Version 1)
Quarter: 2019Q2

REPORT INFORMATION
  Report Type: Other
  Country: None (occurrence: FR)
  Receive Date: 20190413
  Receipt Date: 20190413
  Transmission Date: 20190711
  Serious: Yes (Other)
  Sender: FDA-Public Use
  Company Number: FR-KADMON PHARMACEUTICALS, LLC-KAD201712-001294

PATIENT
  Age: 59 Year
  Sex: Male
  Weight: 64 kg

DRUGS (7)
  1. RIBAVIRIN. [Suspect]
     Active Substance: RIBAVIRIN
     Indication: CHRONIC HEPATITIS C
     Dates: start: 2016, end: 2016
  2. EUCREAS 50 MG/100 MG [Concomitant]
     Indication: TYPE 2 DIABETES MELLITUS
     Dosage: 1 DOSAGE FORM
  3. LEDIPASVIR/SOFOSBUVIR [Suspect]
     Active Substance: LEDIPASVIR\SOFOSBUVIR
     Indication: CHRONIC HEPATITIS C
     Dates: start: 20160212, end: 20160512
  4. IRBESARTAN 150 MG [Concomitant]
     Active Substance: IRBESARTAN
     Dosage: 150 MG
  5. KARDEGIC [Concomitant]
     Active Substance: ASPIRIN DL-LYSINE
     Dosage: 160 MG
  6. LEDIPASVIR/SOFOSBUVIR [Suspect]
     Active Substance: LEDIPASVIR\SOFOSBUVIR
     Dates: start: 2016, end: 2016
  7. SIMVASTATIN. [Concomitant]
     Active Substance: SIMVASTATIN
     Dosage: 20 MG

REACTIONS (4)
  - Drug ineffective [Unknown]
  - Treatment failure [Unknown]
  - Hepatitis C [Unknown]
  - Genotype drug resistance test positive [Unknown]

NARRATIVE: CASE EVENT DATE: 20161028
